FAERS Safety Report 11997658 (Version 1)
Quarter: 2016Q1

REPORT INFORMATION
  Report Type: Spontaneous
  Country: US (occurrence: US)
  Receive Date: 20160203
  Receipt Date: 20160203
  Transmission Date: 20160526
  Serious: No
  Sender: FDA-Public Use
  Company Number: US-ANACOR-2015ANA00202

PATIENT
  Age: 83 Year
  Sex: Female

DRUGS (2)
  1. KERYDIN [Suspect]
     Active Substance: TAVABOROLE
     Dosage: UNK, ONCE
     Route: 045
     Dates: start: 20151119, end: 20151119
  2. KERYDIN [Suspect]
     Active Substance: TAVABOROLE
     Dosage: UNK

REACTIONS (2)
  - Application site pain [Not Recovered/Not Resolved]
  - Drug administered at inappropriate site [Recovered/Resolved]

NARRATIVE: CASE EVENT DATE: 20151119
